FAERS Safety Report 11874193 (Version 2)
Quarter: 2016Q1

REPORT INFORMATION
  Report Type: Spontaneous
  Country: US (occurrence: US)
  Receive Date: 20151229
  Receipt Date: 20160127
  Transmission Date: 20160526
  Serious: Yes (Other)
  Sender: FDA-Public Use
  Company Number: US-BEH-2015057294

PATIENT
  Age: 66 Year
  Sex: Female
  Weight: 110 kg

DRUGS (50)
  1. CIPROFLOXACIN. [Concomitant]
     Active Substance: CIPROFLOXACIN
  2. HYDROCHLORTHIAZIDE [Concomitant]
     Active Substance: HYDROCHLOROTHIAZIDE
  3. ALBUTEROL SULFATE. [Concomitant]
     Active Substance: ALBUTEROL SULFATE
  4. GLIPIZIDE. [Concomitant]
     Active Substance: GLIPIZIDE
  5. SUPER B-50 COMPLEX [Concomitant]
  6. NEXIUM [Concomitant]
     Active Substance: ESOMEPRAZOLE MAGNESIUM
  7. ESTER-C [Concomitant]
     Active Substance: CALCIUM\VITAMINS
  8. BOOST HIGH PROTEIN [Concomitant]
  9. VITAMIN D [Concomitant]
     Active Substance: CHOLECALCIFEROL
  10. ASPIRIN. [Concomitant]
     Active Substance: ASPIRIN
  11. CENTRUM [Concomitant]
     Active Substance: VITAMINS
  12. FISH OIL [Concomitant]
     Active Substance: FISH OIL
  13. OXYGEN. [Concomitant]
     Active Substance: OXYGEN
  14. HIZENTRA [Suspect]
     Active Substance: HUMAN IMMUNOGLOBULIN G
     Indication: ASTHMA
     Dosage: 4 GM 20 ML VIALS, START DATE: MAY-2010
     Route: 058
  15. DIPHENHYDRAMINE. [Concomitant]
     Active Substance: DIPHENHYDRAMINE
  16. LIDOCAINE. [Concomitant]
     Active Substance: LIDOCAINE
  17. TESSALON [Concomitant]
     Active Substance: BENZONATATE
  18. SILVADENE [Concomitant]
     Active Substance: SILVER SULFADIAZINE
  19. TRIAZOLAM. [Concomitant]
     Active Substance: TRIAZOLAM
  20. NYSTATIN. [Concomitant]
     Active Substance: NYSTATIN
  21. CARAFATE [Concomitant]
     Active Substance: SUCRALFATE
  22. COMBIVENT [Concomitant]
     Active Substance: ALBUTEROL SULFATE\IPRATROPIUM BROMIDE
  23. FLUCONAZOLE. [Concomitant]
     Active Substance: FLUCONAZOLE
  24. XALATAN [Concomitant]
     Active Substance: LATANOPROST
  25. ALDACTONE [Concomitant]
     Active Substance: SPIRONOLACTONE
  26. ZOLPIDEM [Concomitant]
     Active Substance: ZOLPIDEM\ZOLPIDEM TARTRATE
  27. IBUPROFEN. [Concomitant]
     Active Substance: IBUPROFEN
  28. FLAGYL [Concomitant]
     Active Substance: METRONIDAZOLE\METRONIDAZOLE HYDROCHLORIDE
  29. IRON [Concomitant]
     Active Substance: IRON
  30. PROMETHAZINE-CODEINE [Concomitant]
     Active Substance: CODEINE PHOSPHATE\PROMETHAZINE
  31. LOSARTAN. [Concomitant]
     Active Substance: LOSARTAN
  32. MUCINEX [Concomitant]
     Active Substance: GUAIFENESIN
  33. EPIPEN [Concomitant]
     Active Substance: EPINEPHRINE
  34. CLONIDINE. [Concomitant]
     Active Substance: CLONIDINE
  35. PULMICORT TURBUHALER [Concomitant]
     Active Substance: BUDESONIDE
  36. XOPENEX [Concomitant]
     Active Substance: LEVALBUTEROL HYDROCHLORIDE
  37. DUONEB [Concomitant]
     Active Substance: ALBUTEROL SULFATE\IPRATROPIUM BROMIDE
  38. AMOXICILLIN. [Concomitant]
     Active Substance: AMOXICILLIN
  39. LOPERAMIDE [Concomitant]
     Active Substance: LOPERAMIDE
  40. HYDROCODONE- ACETAMINOPHEN [Concomitant]
  41. MECLIZINE [Concomitant]
     Active Substance: MECLIZINE HYDROCHLORIDE
  42. ULTRAM [Concomitant]
     Active Substance: TRAMADOL HYDROCHLORIDE
  43. CLARITIN [Concomitant]
     Active Substance: LORATADINE
  44. HIZENTRA [Suspect]
     Active Substance: HUMAN IMMUNOGLOBULIN G
     Indication: IMMUNODEFICIENCY COMMON VARIABLE
     Dosage: 4 GM 20 ML VIALS, START DATE: MAY-2010
     Route: 058
  45. NORVASC [Concomitant]
     Active Substance: AMLODIPINE BESYLATE
  46. FLOVENT [Concomitant]
     Active Substance: FLUTICASONE PROPIONATE
  47. HUMALOG [Concomitant]
     Active Substance: INSULIN LISPRO
  48. PROCTOFOAM [Concomitant]
     Active Substance: PRAMOXINE HYDROCHLORIDE
  49. ATIVAN [Concomitant]
     Active Substance: LORAZEPAM
  50. MAGNESIUM [Concomitant]
     Active Substance: MAGNESIUM

REACTIONS (2)
  - Gastric infection [Recovering/Resolving]
  - Upper respiratory tract infection [Recovering/Resolving]

NARRATIVE: CASE EVENT DATE: 201305
